FAERS Safety Report 7705248-6 (Version None)
Quarter: 2011Q3

REPORT INFORMATION
  Report Type: 
  Country: None (occurrence: None)
  Receive Date: 20110818
  Receipt Date: 20110802
  Transmission Date: 20111222
  Serious: Yes (Hospitalization, Other)
  Sender: FDA-Public Use
  Company Number: 2011MA010845

PATIENT
  Age: 2 Year
  Sex: Male

DRUGS (6)
  1. SULFATRIM [Suspect]
     Indication: EPIDURITIS
     Dosage: PO
     Route: 048
  2. SULFATRIM [Suspect]
     Indication: BACK PAIN
     Dosage: PO
     Route: 048
  3. SULFATRIM [Suspect]
     Indication: PYREXIA
     Dosage: PO
     Route: 048
  4. RIFAMPIN [Suspect]
     Indication: BACK PAIN
     Dosage: PO
     Route: 048
  5. RIFAMPIN [Suspect]
     Indication: EPIDURITIS
     Dosage: PO
     Route: 048
  6. RIFAMPIN [Suspect]
     Indication: PYREXIA
     Dosage: PO
     Route: 048

REACTIONS (4)
  - ASPARTATE AMINOTRANSFERASE INCREASED [None]
  - ALANINE AMINOTRANSFERASE INCREASED [None]
  - SKIN TEST POSITIVE [None]
  - DRUG RASH WITH EOSINOPHILIA AND SYSTEMIC SYMPTOMS [None]
